FAERS Safety Report 5982951-X (Version None)
Quarter: 2008Q4

REPORT INFORMATION
  Report Type: 
  Country: None (occurrence: None)
  Receive Date: 20081208
  Receipt Date: 20081031
  Transmission Date: 20090506
  Serious: Yes (Hospitalization)
  Sender: FDA-Public Use
  Company Number: US-AMGEN-QUU316628

PATIENT
  Sex: Female

DRUGS (5)
  1. ENBREL [Suspect]
     Indication: RHEUMATOID ARTHRITIS
     Dates: start: 20070801
  2. DARVOCET-N 100 [Concomitant]
  3. SYNTHROID [Concomitant]
  4. ZESTRIL [Concomitant]
  5. IBUPROFEN TABLETS [Concomitant]

REACTIONS (1)
  - ACUTE MYELOID LEUKAEMIA [None]
